FAERS Safety Report 6549808-7 (Version None)
Quarter: 2010Q1

REPORT INFORMATION
  Report Type: 
  Country: None (occurrence: None)
  Receive Date: 20100119
  Receipt Date: 20100105
  Transmission Date: 20100710
  Serious: No
  Sender: FDA-Public Use
  Company Number: 000228435-AKO-4994

PATIENT

DRUGS (1)
  1. GENTAK [Suspect]
     Indication: PROPHYLAXIS
     Dosage: OT, TOPICAL
     Route: 061
     Dates: start: 20091126, end: 20091126

REACTIONS (4)
  - BLISTER [None]
  - ERYTHEMA [None]
  - ERYTHEMA OF EYELID [None]
  - SKIN EXFOLIATION [None]
